FAERS Safety Report 16856278 (Version 1)
Quarter: 2019Q3

REPORT INFORMATION
  Report Type: Spontaneous
  Country: FR (occurrence: FR)
  Receive Date: 20190926
  Receipt Date: 20190926
  Transmission Date: 20191005
  Serious: Yes (Death)
  Sender: FDA-Public Use
  Company Number: FR-MYLANLABS-2019M1089752

PATIENT
  Age: 58 Year
  Sex: Female
  Weight: 115 kg

DRUGS (4)
  1. METHOTREXATE MYLAN 2.5 MG/ML, SOLUTION FOR INJECTION [Suspect]
     Active Substance: METHOTREXATE
     Indication: CENTRAL NERVOUS SYSTEM LYMPHOMA
     Dosage: 6500 MILLIGRAM, TOTAL
     Route: 042
     Dates: start: 20190115, end: 20190115
  2. RITUXIMAB. [Concomitant]
     Active Substance: RITUXIMAB
     Dosage: UNK
  3. PROCARBAZINE [Concomitant]
     Active Substance: PROCARBAZINE
     Dosage: UNK
  4. VINCRISTINE SULPHATE [Concomitant]
     Active Substance: VINCRISTINE SULFATE
     Dosage: UNK

REACTIONS (4)
  - Diarrhoea [Not Recovered/Not Resolved]
  - Acute kidney injury [Fatal]
  - Incorrect disposal of product [Not Recovered/Not Resolved]
  - Acute pulmonary oedema [Fatal]

NARRATIVE: CASE EVENT DATE: 20190116
